FAERS Safety Report 7704470-2 (Version None)
Quarter: 2011Q3

REPORT INFORMATION
  Report Type: 
  Country: None (occurrence: None)
  Receive Date: 20110823
  Receipt Date: 20110816
  Transmission Date: 20111222
  Serious: Yes (Hospitalization)
  Sender: FDA-Public Use
  Company Number: US-ABBOTT-11P-163-0840033-00

PATIENT
  Sex: Male
  Weight: 52.664 kg

DRUGS (13)
  1. PREDNISONE TAB [Concomitant]
     Indication: CROHN'S DISEASE
  2. ZAFIRLUKAST [Concomitant]
     Indication: ASTHMA
  3. GLIMEPIRIDE [Concomitant]
     Indication: DIABETES MELLITUS
  4. TRIAMTERENE AND HYDROCHLOROTHIAZIDE [Concomitant]
     Indication: HYPERTENSION
     Dosage: 37.5/25
  5. XOPENEX [Concomitant]
     Indication: ASTHMA
     Dosage: 1.25 LIQUID PER NEBULIZER DAILY
  6. TRAMADOL HCL [Concomitant]
     Indication: ARTHRITIS
  7. HUMIRA [Suspect]
     Indication: CROHN'S DISEASE
     Dates: start: 20110201
  8. PAROXETINE HCL [Concomitant]
     Indication: PRODUCT USED FOR UNKNOWN INDICATION
  9. PREDNISONE TAB [Concomitant]
  10. PROAIR HFA [Concomitant]
     Indication: ASTHMA
     Dosage: INHALER
  11. NEXIUM [Concomitant]
     Indication: DYSPEPSIA
  12. NAPROSYN [Concomitant]
     Indication: ARTHRALGIA
  13. ASPIRIN [Concomitant]
     Indication: ARTHRALGIA

REACTIONS (5)
  - LARGE INTESTINE PERFORATION [None]
  - PELVIC ABSCESS [None]
  - WEIGHT DECREASED [None]
  - DIARRHOEA [None]
  - DRUG INEFFECTIVE [None]
